FAERS Safety Report 9564464 (Version 3)
Quarter: 2014Q1

REPORT INFORMATION
  Report Type: Spontaneous
  Country: US (occurrence: US)
  Receive Date: 20130930
  Receipt Date: 20140320
  Transmission Date: 20141002
  Serious: Yes (Hospitalization, Other)
  Sender: FDA-Public Use
  Company Number: US-BRISTOL-MYERS SQUIBB COMPANY-19404961

PATIENT
  Age: 71 Year
  Sex: Male
  Weight: 104.31 kg

DRUGS (6)
  1. BYDUREON [Suspect]
     Indication: TYPE 2 DIABETES MELLITUS
     Dosage: START DATE: SEP 2012
     Dates: start: 201209
  2. IFOSFAMIDE [Suspect]
  3. CARBOPLATIN [Suspect]
  4. ETOPOSIDE [Suspect]
  5. COUMADIN [Concomitant]
  6. XARELTO [Concomitant]

REACTIONS (4)
  - Respiratory tract infection [Recovered/Resolved]
  - Hodgkin^s disease [Recovered/Resolved]
  - Injection site haemorrhage [Recovered/Resolved]
  - Product quality issue [Unknown]
